FAERS Safety Report 8226811-2 (Version None)
Quarter: 2012Q1

REPORT INFORMATION
  Report Type: 
  Country: None (occurrence: None)
  Receive Date: 20120322
  Receipt Date: 20120313
  Transmission Date: 20120608
  Serious: Yes (Hospitalization)
  Sender: FDA-Public Use
  Company Number: US-BAYER-2011-123707

PATIENT
  Age: 46 Year
  Sex: Female
  Weight: 126.8 kg

DRUGS (7)
  1. LOZOL [Concomitant]
     Indication: HYPERTENSION
  2. FLUOXETINE [Concomitant]
     Indication: DEPRESSION
  3. YAZ [Suspect]
     Dosage: UNK
     Dates: start: 20080101, end: 20101201
  4. TRAZODONE HCL [Concomitant]
     Indication: SLEEP DISORDER THERAPY
  5. FLUOXETINE [Concomitant]
     Indication: OBSESSIVE-COMPULSIVE DISORDER
  6. TYLENOL [Concomitant]
     Indication: HEADACHE
     Dosage: UNK
  7. DIOVAN [Concomitant]
     Indication: HYPERTENSION

REACTIONS (4)
  - MULTIPLE INJURIES [None]
  - CHOLECYSTECTOMY [None]
  - PAIN [None]
  - EMOTIONAL DISTRESS [None]
